FAERS Safety Report 14325101 (Version 2)
Quarter: 2018Q1

REPORT INFORMATION
  Report Type: Spontaneous
  Country: JP (occurrence: JP)
  Receive Date: 20171226
  Receipt Date: 20180118
  Transmission Date: 20180509
  Serious: Yes (Death, Other)
  Sender: FDA-Public Use
  Company Number: JP-ELI_LILLY_AND_COMPANY-JP201712010694

PATIENT
  Age: 72 Year
  Sex: Male
  Weight: 60 kg

DRUGS (8)
  1. FINIBAX [Suspect]
     Active Substance: DORIPENEM MONOHYDRATE
     Indication: PNEUMONITIS
     Dosage: 1 G, TID
     Route: 065
     Dates: start: 20171115
  2. PAZUFLOXACIN [Concomitant]
     Active Substance: PAZUFLOXACIN
     Dosage: 500 MG, BID
     Route: 041
     Dates: start: 20171101, end: 20171107
  3. ALLOPURINOL. [Concomitant]
     Active Substance: ALLOPURINOL
     Route: 048
  4. CYRAMZA [Suspect]
     Active Substance: RAMUCIRUMAB
     Indication: LUNG ADENOCARCINOMA STAGE IV
     Dosage: 10 MG/KG, UNK
     Route: 041
     Dates: start: 20171108, end: 20171211
  5. DOCETAXEL. [Suspect]
     Active Substance: DOCETAXEL
     Indication: LUNG ADENOCARCINOMA STAGE IV
     Dosage: 60 MG/M2, UNK
     Route: 041
     Dates: start: 20171108, end: 20171211
  6. FILGRASTIM [Suspect]
     Active Substance: FILGRASTIM
     Indication: NEUTROPHIL COUNT DECREASED
     Dosage: UNK
     Route: 065
     Dates: start: 20171113, end: 20171114
  7. G LASTA [Concomitant]
     Active Substance: PEGFILGRASTIM
     Dosage: UNK
     Dates: start: 20171110
  8. OXYGEN. [Concomitant]
     Active Substance: OXYGEN
     Indication: HYPOXIA

REACTIONS (4)
  - Lymphangiosis carcinomatosa [Fatal]
  - Cholelithiasis [Unknown]
  - Pneumonitis [Fatal]
  - Neutrophil count decreased [Unknown]

NARRATIVE: CASE EVENT DATE: 20171111
